FAERS Safety Report 16627659 (Version 3)
Quarter: 2019Q4

REPORT INFORMATION
  Report Type: Spontaneous
  Country: DE (occurrence: DE)
  Receive Date: 20190724
  Receipt Date: 20191220
  Transmission Date: 20200122
  Serious: Yes (Death, Other)
  Sender: FDA-Public Use
  Company Number: DE-MYLANLABS-2019M1069164

PATIENT
  Age: 63 Year
  Sex: Female
  Weight: 50 kg

DRUGS (3)
  1. MOXIFLOXACIN. [Suspect]
     Active Substance: MOXIFLOXACIN
     Indication: BRONCHITIS
     Dosage: 400MG
     Route: 048
     Dates: start: 20170315, end: 20170322
  2. PIROXICAM. [Concomitant]
     Active Substance: PIROXICAM
     Indication: ARTHRALGIA
     Dosage: UNK
  3. MOXIFLOXACIN. [Suspect]
     Active Substance: MOXIFLOXACIN
     Indication: BRONCHIAL HYPERREACTIVITY
     Dosage: UNK

REACTIONS (37)
  - Arthralgia [Fatal]
  - Dizziness [Unknown]
  - Feeling abnormal [Unknown]
  - Asthenia [Unknown]
  - Renal pain [Unknown]
  - Flatulence [Unknown]
  - Disturbance in attention [Unknown]
  - Thinking abnormal [Unknown]
  - Deep vein thrombosis [Unknown]
  - Apathy [Fatal]
  - Pancytopenia [Unknown]
  - Confusional state [Unknown]
  - Memory impairment [Unknown]
  - Depersonalisation/derealisation disorder [Unknown]
  - Muscular weakness [Unknown]
  - Dysphagia [Fatal]
  - Depression [Fatal]
  - Disorientation [Unknown]
  - Amaurosis [Unknown]
  - Oedema [Unknown]
  - Hypersensitivity [Unknown]
  - Hypophagia [Fatal]
  - Myalgia [Fatal]
  - Decreased appetite [Unknown]
  - Nephropathy [Unknown]
  - Photopsia [Unknown]
  - Fatigue [Unknown]
  - Flank pain [Unknown]
  - Diplopia [Unknown]
  - Dyspepsia [Unknown]
  - Headache [Unknown]
  - Thrombocytopenia [Fatal]
  - Weight decreased [Fatal]
  - Pyrexia [Fatal]
  - Diarrhoea [Unknown]
  - Nausea [Unknown]
  - Visual impairment [Unknown]

NARRATIVE: CASE EVENT DATE: 2017
